FAERS Safety Report 8471783 (Version 3)
Quarter: 2012Q4

REPORT INFORMATION
  Report Type: 
  Country: JP (occurrence: JP)
  Receive Date: 20120322
  Receipt Date: 20121016
  Transmission Date: 20130627
  Serious: Yes (Hospitalization)
  Sender: FDA-Public Use
  Company Number: PHHY2012JP018189

PATIENT
  Age: 50 Year
  Sex: Male

DRUGS (4)
  1. CICLOSPORIN [Suspect]
     Indication: COLITIS ULCERATIVE
     Route: 048
  2. CICLOSPORIN [Suspect]
     Indication: APLASIA PURE RED CELL
     Dosage: 200 mg, per day
  3. PREDNISOLONE [Suspect]
     Indication: COLITIS ULCERATIVE
  4. AZATHIOPRINE [Suspect]
     Indication: COLITIS ULCERATIVE
     Route: 048

REACTIONS (4)
  - Transfusion reaction [Unknown]
  - Haemolysis [Unknown]
  - Cytomegalovirus infection [Recovered/Resolved]
  - Anaemia [Recovering/Resolving]
